FAERS Safety Report 5389395-2 (Version None)
Quarter: 2007Q3

REPORT INFORMATION
  Report Type: 
  Country: None (occurrence: None)
  Receive Date: 20070717
  Receipt Date: 20070705
  Transmission Date: 20080115
  Serious: Yes (Hospitalization, Other)
  Sender: FDA-Public Use
  Company Number: JP-ROCHE-494549

PATIENT
  Age: 31 Year
  Sex: Male
  Weight: 57 kg

DRUGS (1)
  1. PEGASYS [Suspect]
     Route: 058
     Dates: start: 20061221, end: 20070405

REACTIONS (4)
  - DIABETES MELLITUS [None]
  - HYPERTHYROIDISM [None]
  - NAUSEA [None]
  - STOMATITIS [None]
